FAERS Safety Report 7877550-9 (Version None)
Quarter: 2011Q4

REPORT INFORMATION
  Report Type: 
  Country: None (occurrence: None)
  Receive Date: 20111031
  Receipt Date: 20111018
  Transmission Date: 20120403
  Serious: Yes (Hospitalization)
  Sender: FDA-Public Use
  Company Number: US-PFIZER INC-2011253948

PATIENT
  Sex: Male

DRUGS (2)
  1. BLINDED THERAPY [Suspect]
     Indication: PROSTATE CANCER
     Dosage: 1 DOSAGE FORM 1/3 WEEK
     Route: 042
     Dates: start: 20101227, end: 20110207
  2. METHIMAZOLE [Suspect]
     Indication: HYPERTHYROIDISM
     Dosage: 10 MG 3/1 DAY
     Dates: start: 20110401

REACTIONS (2)
  - LEUKOPENIA [None]
  - FAILURE TO THRIVE [None]
